FAERS Safety Report 24537546 (Version 1)
Quarter: 2024Q4

REPORT INFORMATION
  Report Type: Spontaneous
  Country: FR (occurrence: FR)
  Receive Date: 20241023
  Receipt Date: 20241023
  Transmission Date: 20250114
  Serious: Yes (Other)
  Sender: ROCHE
  Company Number: FR-ROCHE-10000100414

PATIENT
  Age: 80 Year
  Sex: Female

DRUGS (11)
  1. VABYSMO [Suspect]
     Active Substance: FARICIMAB-SVOA
     Indication: Diabetic retinal oedema
     Dosage: FIRST IVT OD
     Route: 050
     Dates: start: 20240430
  2. VABYSMO [Suspect]
     Active Substance: FARICIMAB-SVOA
     Dosage: FIRST IVT OS
     Route: 050
     Dates: start: 20240507
  3. VABYSMO [Suspect]
     Active Substance: FARICIMAB-SVOA
     Dosage: SECOND IVT OD
     Route: 050
     Dates: start: 20240528
  4. VABYSMO [Suspect]
     Active Substance: FARICIMAB-SVOA
     Dosage: SECOND IVT OS
     Route: 050
     Dates: start: 20240604
  5. VABYSMO [Suspect]
     Active Substance: FARICIMAB-SVOA
     Dosage: THIRD IVT OD
     Route: 050
     Dates: start: 20240702
  6. VABYSMO [Suspect]
     Active Substance: FARICIMAB-SVOA
     Dosage: THIRD IVT OS
     Route: 050
     Dates: start: 20240709
  7. VABYSMO [Suspect]
     Active Substance: FARICIMAB-SVOA
     Dosage: FOURTH IVT OD
     Route: 050
     Dates: start: 20240730
  8. VABYSMO [Suspect]
     Active Substance: FARICIMAB-SVOA
     Dosage: FOURTH IVT OS
     Route: 050
     Dates: start: 20240806
  9. VABYSMO [Suspect]
     Active Substance: FARICIMAB-SVOA
     Dosage: FIFTH IVT OS
     Route: 050
     Dates: start: 20240924
  10. METFORMIN PAMOATE [Concomitant]
     Active Substance: METFORMIN PAMOATE
     Indication: Diabetes mellitus
  11. CRESTOR [Concomitant]
     Active Substance: ROSUVASTATIN CALCIUM
     Indication: Diabetes mellitus

REACTIONS (5)
  - Uveitis [Unknown]
  - Keratic precipitates [Recovering/Resolving]
  - Iridocyclitis [Recovering/Resolving]
  - Ocular hypertension [Recovering/Resolving]
  - Vitritis [Recovering/Resolving]

NARRATIVE: CASE EVENT DATE: 20241002
